FAERS Safety Report 5451401-4 (Version None)
Quarter: 2007Q3

REPORT INFORMATION
  Report Type: 
  Country: None (occurrence: None)
  Receive Date: 20070913
  Receipt Date: 20070906
  Transmission Date: 20080115
  Serious: Yes (Life-Threatening, Hospitalization, Disabling, Other)
  Sender: FDA-Public Use
  Company Number: A0679190A

PATIENT
  Age: 17 Year
  Sex: Female

DRUGS (6)
  1. WELLBUTRIN XL [Suspect]
     Indication: BIPOLAR DISORDER
     Dosage: 150MG UNKNOWN
     Route: 048
  2. LAMICTAL [Suspect]
     Indication: BIPOLAR DISORDER
     Dosage: 100MG UNKNOWN
     Route: 048
  3. MARIJUANA [Concomitant]
  4. ETHANOL [Concomitant]
  5. BENZODIAZEPINES [Concomitant]
  6. AMPHETAMINES [Concomitant]

REACTIONS (4)
  - BLOOD ETHANOL INCREASED [None]
  - CIRCULATORY COLLAPSE [None]
  - INJURY [None]
  - INTENTIONAL OVERDOSE [None]
